FAERS Safety Report 13048152 (Version 1)
Quarter: 2016Q4

REPORT INFORMATION
  Report Type: Spontaneous
  Country: GB (occurrence: GB)
  Receive Date: 20161220
  Receipt Date: 20161220
  Transmission Date: 20170207
  Serious: Yes (Death)
  Sender: FDA-Public Use
  Company Number: GB-MYLANLABS-2016M1055933

PATIENT

DRUGS (2)
  1. HYDROXYCARBAMIDE [Suspect]
     Active Substance: HYDROXYUREA
     Indication: ESSENTIAL THROMBOCYTHAEMIA
     Dosage: 500 MG, UNK
     Route: 048
     Dates: start: 20160226
  2. ATORVASTATIN [Suspect]
     Active Substance: ATORVASTATIN
     Indication: ANGINA PECTORIS
     Dosage: 40 MG, UNK
     Route: 048
     Dates: start: 20131201, end: 20161001

REACTIONS (4)
  - Myalgia [Fatal]
  - Drug interaction [Unknown]
  - Paraesthesia [Fatal]
  - Arthralgia [Fatal]

NARRATIVE: CASE EVENT DATE: 20160302
